FAERS Safety Report 9962379 (Version 1)
Quarter: 2014Q1

REPORT INFORMATION
  Report Type: Report from Study
  Country: US (occurrence: US)
  Receive Date: 20140305
  Receipt Date: 20140305
  Transmission Date: 20141002
  Serious: No
  Sender: FDA-Public Use
  Company Number: US-ABBVIE-13P-163-1116413-00

PATIENT
  Sex: Female

DRUGS (10)
  1. HUMIRA [Suspect]
     Indication: CROHN^S DISEASE
     Dates: start: 201107
  2. HUMIRA [Suspect]
     Indication: PRODUCT USED FOR UNKNOWN INDICATION
  3. PRAVASTATIN [Concomitant]
  4. PROTONIX [Concomitant]
  5. ZOFRAN [Concomitant]
  6. HYDROCODONE [Concomitant]
  7. PENTASA [Concomitant]
     Indication: PRODUCT USED FOR UNKNOWN INDICATION
     Dosage: 12 CAPS
  8. PENTASA [Concomitant]
     Dosage: 8 CAPS
  9. IMURAN [Concomitant]
     Indication: PRODUCT USED FOR UNKNOWN INDICATION
  10. IMURAN [Concomitant]
     Dosage: 75MG DAILY

REACTIONS (2)
  - Injection site pain [Recovered/Resolved]
  - Injection site pain [Recovered/Resolved]
